FAERS Safety Report 4694174-5 (Version None)
Quarter: 2005Q2

REPORT INFORMATION
  Report Type: 
  Country: None (occurrence: None)
  Receive Date: 20050616
  Receipt Date: 20050616
  Transmission Date: 20051028
  Serious: Yes (Death)
  Sender: FDA-Public Use
  Company Number: None

PATIENT
  Sex: Male

DRUGS (2)
  1. CLOZARIL [Suspect]
     Indication: SCHIZOAFFECTIVE DISORDER
     Dosage: BID
     Dates: start: 20000309, end: 20050327
  2. ABILIFY [Suspect]
     Dosage: DAILY
     Dates: start: 20000309, end: 20050327

REACTIONS (3)
  - COMPLETED SUICIDE [None]
  - DEPRESSION [None]
  - DROWNING [None]
